FAERS Safety Report 6860318-X (Version None)
Quarter: 2010Q2

REPORT INFORMATION
  Report Type: 
  Country: None (occurrence: None)
  Receive Date: 20100528
  Receipt Date: 20100105
  Transmission Date: 20101027
  Serious: Yes (Disabling, Other)
  Sender: FDA-Public Use
  Company Number: CIP09002917

PATIENT
  Age: 84 Year
  Sex: Female
  Weight: 56 kg

DRUGS (2)
  1. ACTONEL [Suspect]
     Indication: OSTEOPENIA
     Dosage: 150 MG ONCE MONTHLY, ORAL
     Route: 048
  2. PRILOSEC [Concomitant]

REACTIONS (4)
  - ARTHRITIS REACTIVE [None]
  - DRUG INTOLERANCE [None]
  - GASTROOESOPHAGEAL REFLUX DISEASE [None]
  - PAIN [None]
